FAERS Safety Report 6141301-9 (Version None)
Quarter: 2009Q1

REPORT INFORMATION
  Report Type: 
  Country: None (occurrence: None)
  Receive Date: 20090331
  Receipt Date: 20090331
  Transmission Date: 20090719
  Serious: Yes (Other)
  Sender: FDA-Public Use
  Company Number: None

PATIENT
  Age: 81 Year
  Sex: Female
  Weight: 77.1115 kg

DRUGS (2)
  1. METOCLOPRAMIDE [Suspect]
     Indication: GASTRITIS
     Dosage: 10 MG. ONCE A DAY BUCCAL APPROX. 9 MOS
     Route: 002
     Dates: start: 20080630, end: 20090328
  2. METOCLOPRAMIDE [Suspect]
     Indication: INFLAMMATION
     Dosage: 10 MG. ONCE A DAY BUCCAL APPROX. 9 MOS
     Route: 002
     Dates: start: 20080630, end: 20090328

REACTIONS (3)
  - CEREBROVASCULAR ACCIDENT [None]
  - DEMENTIA [None]
  - NEURITIS [None]
